FAERS Safety Report 5768856-8 (Version None)
Quarter: 2008Q2

REPORT INFORMATION
  Report Type: 
  Country: None (occurrence: None)
  Receive Date: 20080612
  Receipt Date: 20080312
  Transmission Date: 20081010
  Serious: No
  Sender: FDA-Public Use
  Company Number: US-ABBOTT-08P-163-0442250-00

PATIENT
  Sex: Female
  Weight: 70.37 kg

DRUGS (5)
  1. HUMIRA [Suspect]
     Indication: CROHN'S DISEASE
     Route: 058
     Dates: start: 20070808
  2. HYDROCHLOROTHIAZIDE [Concomitant]
     Indication: HYPERTENSION
     Route: 048
     Dates: start: 20030101
  3. BENADRYL [Concomitant]
     Indication: PRURITUS
     Route: 048
     Dates: start: 20070801
  4. VITAMIN E [Concomitant]
     Indication: DRY SKIN
     Route: 048
     Dates: start: 20030101
  5. VITAMIN E [Concomitant]
     Indication: HAIR TEXTURE ABNORMAL

REACTIONS (5)
  - CONTUSION [None]
  - DRY SKIN [None]
  - HAIR TEXTURE ABNORMAL [None]
  - INJECTION SITE PRURITUS [None]
  - INJECTION SITE RASH [None]
